FAERS Safety Report 9014712 (Version 2)
Quarter: 2013Q1

REPORT INFORMATION
  Report Type: Report from Study
  Country: US (occurrence: US)
  Receive Date: 20130115
  Receipt Date: 20130220
  Transmission Date: 20140127
  Serious: Yes (Hospitalization, Other)
  Sender: FDA-Public Use
  Company Number: US-ABBOTT-13P-163-1033511-00

PATIENT
  Sex: Male
  Weight: 68.1 kg

DRUGS (2)
  1. HUMIRA [Suspect]
     Indication: RHEUMATOID ARTHRITIS
  2. METFORMIN [Concomitant]
     Indication: DIABETES MELLITUS

REACTIONS (3)
  - Joint swelling [Recovered/Resolved]
  - Arthritis [Recovered/Resolved]
  - Blood glucose increased [Recovered/Resolved]
